FAERS Safety Report 6927857-4 (Version None)
Quarter: 2010Q3

REPORT INFORMATION
  Report Type: 
  Country: None (occurrence: None)
  Receive Date: 20100817
  Receipt Date: 20100806
  Transmission Date: 20110219
  Serious: Yes (Other)
  Sender: FDA-Public Use
  Company Number: US-PFIZER INC-2010071708

PATIENT
  Sex: Female
  Weight: 81 kg

DRUGS (5)
  1. CHANTIX [Suspect]
     Indication: SMOKING CESSATION THERAPY
     Dosage: 1 MG, 2X/DAY
     Route: 048
     Dates: start: 20091002, end: 20091019
  2. CYMBALTA [Concomitant]
     Dosage: 60 MG, 2X/DAY
  3. MS CONTIN [Concomitant]
     Dosage: UNK
  4. MORPHINE SULFATE [Concomitant]
     Dosage: UNK
  5. KETAMINE [Concomitant]
     Dosage: UNK
     Route: 058

REACTIONS (7)
  - AGGRESSION [None]
  - DELUSIONAL PERCEPTION [None]
  - DEPRESSION [None]
  - EMOTIONAL DISORDER [None]
  - HOMICIDAL IDEATION [None]
  - IRRITABILITY [None]
  - SUICIDAL IDEATION [None]
